FAERS Safety Report 10143608 (Version 1)
Quarter: 2014Q2

REPORT INFORMATION
  Report Type: Spontaneous
  Country: US (occurrence: US)
  Receive Date: 20140430
  Receipt Date: 20140430
  Transmission Date: 20141212
  Serious: No
  Sender: FDA-Public Use
  Company Number: US-PFIZER INC-2014118685

PATIENT
  Age: 52 Year
  Sex: Female
  Weight: 54.88 kg

DRUGS (3)
  1. LYRICA [Suspect]
     Indication: FIBROMYALGIA
     Dosage: 100 MG, 2X/DAY
     Route: 048
     Dates: end: 201312
  2. CELEBREX [Suspect]
     Indication: ARTHRITIS
     Dosage: 200 MG, 1X/DAY
     Route: 048
     Dates: end: 201312
  3. DIAMIN [Concomitant]
     Dosage: UNK

REACTIONS (3)
  - Influenza [Unknown]
  - Vitamin D decreased [Unknown]
  - Blood calcium decreased [Unknown]
